APPROVED DRUG PRODUCT: ECONAZOLE NITRATE
Active Ingredient: ECONAZOLE NITRATE
Strength: 1%
Dosage Form/Route: CREAM;TOPICAL
Application: A076479 | Product #001 | TE Code: AB
Applicant: PADAGIS ISRAEL PHARMACEUTICALS LTD
Approved: Jun 23, 2004 | RLD: No | RS: Yes | Type: RX